FAERS Safety Report 7406813-6 (Version None)
Quarter: 2011Q2

REPORT INFORMATION
  Report Type: 
  Country: None (occurrence: None)
  Receive Date: 20110411
  Receipt Date: 20110329
  Transmission Date: 20111010
  Serious: Yes (Other)
  Sender: FDA-Public Use
  Company Number: FR-JNJFOC-20110400427

PATIENT

DRUGS (1)
  1. INFLIXIMAB, RECOMBINANT [Suspect]
     Indication: COLITIS
     Route: 042

REACTIONS (2)
  - DISSEMINATED CYTOMEGALOVIRAL INFECTION [None]
  - PNEUMOCYSTIS JIROVECI PNEUMONIA [None]
